FAERS Safety Report 7890112-2 (Version None)
Quarter: 2011Q4

REPORT INFORMATION
  Report Type: 
  Country: None (occurrence: None)
  Receive Date: 20111103
  Receipt Date: 20111019
  Transmission Date: 20120403
  Serious: Yes (Death, Other)
  Sender: FDA-Public Use
  Company Number: GB-WATSON-2011-18011

PATIENT
  Age: 19 Year

DRUGS (5)
  1. GABAPENTIN [Suspect]
     Indication: PRODUCT USED FOR UNKNOWN INDICATION
  2. BENZODIAZEPINE DERIVATIVES [Suspect]
     Indication: PRODUCT USED FOR UNKNOWN INDICATION
  3. H2 ANTAGONIST [Suspect]
     Indication: PRODUCT USED FOR UNKNOWN INDICATION
  4. PROPOFOL [Suspect]
     Indication: PRODUCT USED FOR UNKNOWN INDICATION
  5. MORPHINE SULFATE [Suspect]
     Indication: PRODUCT USED FOR UNKNOWN INDICATION

REACTIONS (2)
  - ENTEROBACTER BACTERAEMIA [None]
  - RHABDOMYOLYSIS [None]
